FAERS Safety Report 20453777 (Version 1)
Quarter: 2022Q1

REPORT INFORMATION
  Report Type: Spontaneous
  Country: DE (occurrence: DE)
  Receive Date: 20220210
  Receipt Date: 20220210
  Transmission Date: 20220424
  Serious: Yes (Other)
  Sender: FDA-Public Use
  Company Number: DE-MLMSERVICE-2022020133371291

PATIENT
  Age: 76 Year
  Sex: Female

DRUGS (1)
  1. METHOTREXATE [Suspect]
     Active Substance: METHOTREXATE
     Indication: Rheumatoid arthritis
     Route: 048

REACTIONS (6)
  - Ulna fracture [Recovered/Resolved]
  - Bone disorder [Recovered/Resolved]
  - Ankle fracture [Recovered/Resolved]
  - Tibia fracture [Recovered/Resolved]
  - Stress fracture [Recovered/Resolved]
  - Foot fracture [Recovered/Resolved]
